FAERS Safety Report 4339757-7 (Version None)
Quarter: 2004Q2

REPORT INFORMATION
  Report Type: 
  Country: None (occurrence: None)
  Receive Date: 20040415
  Receipt Date: 20040415
  Transmission Date: 20050107
  Serious: Yes (Hospitalization)
  Sender: FDA-Public Use
  Company Number: None

PATIENT
  Age: 84 Year
  Sex: Female
  Weight: 45.1 kg

DRUGS (8)
  1. DIGOXIN [Suspect]
     Indication: ATRIAL FIBRILLATION
     Dosage: 0.25 DAILY ORAL
     Route: 048
     Dates: start: 20021211, end: 20031211
  2. MAXZIDE [Concomitant]
  3. MOBIC [Concomitant]
  4. ASPIRIN [Concomitant]
  5. GLUCOPHAGE [Concomitant]
  6. VALIUM [Concomitant]
  7. NEURONTIN [Concomitant]
  8. AMIGESIC [Concomitant]

REACTIONS (4)
  - ANOREXIA [None]
  - HEART RATE DECREASED [None]
  - NAUSEA [None]
  - THERAPEUTIC AGENT TOXICITY [None]
